FAERS Safety Report 23437811 (Version 2)
Quarter: 2025Q1

REPORT INFORMATION
  Report Type: Spontaneous
  Country: IT (occurrence: IT)
  Receive Date: 20240124
  Receipt Date: 20250325
  Transmission Date: 20250409
  Serious: Yes (Other)
  Sender: TEVA
  Company Number: IT-TEVA-VS-3148573

PATIENT
  Age: 39 Year
  Sex: Male

DRUGS (2)
  1. PREDNISONE [Suspect]
     Active Substance: PREDNISONE
     Indication: Asthma
     Route: 048
  2. TIOTROPIUM [Concomitant]
     Active Substance: TIOTROPIUM
     Indication: Asthma
     Route: 055

REACTIONS (2)
  - Immune system disorder [Unknown]
  - Drug ineffective [Unknown]
